FAERS Safety Report 8937065 (Version 2)
Quarter: 2012Q4

REPORT INFORMATION
  Report Type: 
  Country: KR (occurrence: KR)
  Receive Date: 20121129
  Receipt Date: 20121210
  Transmission Date: 20130627
  Serious: Yes (Other)
  Sender: FDA-Public Use
  Company Number: KR-RANBAXY-2012RR-62445

PATIENT
  Age: 47 Year
  Sex: Male
  Weight: 65 kg

DRUGS (12)
  1. METOCLOPRAMIDE [Suspect]
     Indication: PROCEDURAL NAUSEA
     Dosage: 10 mg, single
     Route: 042
  2. METOCLOPRAMIDE [Suspect]
     Indication: PROCEDURAL VOMITING
  3. FENTANYL [Suspect]
     Indication: ANALGESIC THERAPY
     Dosage: 1000 ?g mixed with 100 ml of normal saline
     Route: 065
  4. ONDANSETRON [Suspect]
     Indication: PROCEDURAL NAUSEA
     Dosage: 8 mg, single
     Route: 042
  5. ONDANSETRON [Suspect]
     Indication: PROCEDURAL VOMITING
  6. MIDAZOLAM [Concomitant]
     Indication: ANAESTHESIA
     Dosage: 2 mg, UNK
     Route: 030
  7. GLYCOPYRROLATE [Concomitant]
     Indication: ANAESTHESIA
     Dosage: 0.2 mg, UNK
     Route: 065
  8. PROPOFOL [Concomitant]
     Indication: INDUCTION OF ANAESTHESIA
     Dosage: 120 mg, UNK
  9. FENTANYL [Concomitant]
     Indication: INDUCTION OF ANAESTHESIA
     Dosage: 100 ?g, UNK
     Route: 065
  10. ROCURONIUM [Concomitant]
     Indication: INDUCTION OF ANAESTHESIA
     Dosage: 50 mg, UNK
     Route: 065
  11. REMIFENTANIL [Concomitant]
     Indication: MAINTENANCE OF ANAESTHESIA
     Dosage: continuous infusion
     Route: 042
  12. DESFLURANE [Concomitant]
     Indication: MAINTENANCE OF ANAESTHESIA
     Dosage: UNK
     Route: 065

REACTIONS (4)
  - Oculogyric crisis [Recovered/Resolved]
  - Opisthotonus [Recovered/Resolved]
  - Nausea [Unknown]
  - Vomiting [Unknown]
